FAERS Safety Report 4269970-9 (Version None)
Quarter: 2004Q1

REPORT INFORMATION
  Report Type: 
  Country: None (occurrence: None)
  Receive Date: 20040112
  Receipt Date: 20031231
  Transmission Date: 20041129
  Serious: Yes (Hospitalization, Other)
  Sender: FDA-Public Use
  Company Number: US-JNJFOC-20040100400

PATIENT
  Age: 68 Year
  Sex: Female

DRUGS (4)
  1. REMICADE [Suspect]
     Indication: RHEUMATOID ARTHRITIS
  2. PREDNISONE [Concomitant]
  3. FA (FOLIC ACID) [Concomitant]
  4. METHOTREXATE SODIUM [Concomitant]

REACTIONS (2)
  - PNEUMONIA [None]
  - PULMONARY COCCIDIOIDES [None]
